FAERS Safety Report 12668591 (Version 1)
Quarter: 2016Q3

REPORT INFORMATION
  Report Type: Spontaneous
  Country: IT (occurrence: IT)
  Receive Date: 20160819
  Receipt Date: 20160819
  Transmission Date: 20161109
  Serious: Yes (Life-Threatening)
  Sender: FDA-Public Use
  Company Number: IT-TEVA-684606ACC

PATIENT
  Age: 61 Year
  Sex: Female
  Weight: 92 kg

DRUGS (1)
  1. CARBOPLATINO TEVA [Suspect]
     Active Substance: CARBOPLATIN
     Indication: FALLOPIAN TUBE CANCER
     Route: 042
     Dates: start: 20160707, end: 20160804

REACTIONS (3)
  - Anaphylactic shock [Recovered/Resolved]
  - Loss of consciousness [Recovered/Resolved]
  - Chest discomfort [Recovered/Resolved]

NARRATIVE: CASE EVENT DATE: 20160804
